FAERS Safety Report 5750684-0 (Version None)
Quarter: 2008Q2

REPORT INFORMATION
  Report Type: 
  Country: None (occurrence: None)
  Receive Date: 20080528
  Receipt Date: 20080522
  Transmission Date: 20081010
  Serious: Yes (Life-Threatening, Hospitalization)
  Sender: FDA-Public Use
  Company Number: FR-JNJFOC-20080300376

PATIENT
  Sex: Male

DRUGS (10)
  1. SPORANOX [Suspect]
     Route: 048
  2. SPORANOX [Suspect]
     Indication: ASPERGILLOSIS
     Route: 048
  3. PLAVIX [Concomitant]
     Indication: DRUG USE FOR UNKNOWN INDICATION
     Route: 065
  4. ISOPTIN [Concomitant]
     Indication: CORONARY ARTERY INSUFFICIENCY
     Route: 048
  5. PERINDOPRIL ERBUMINE [Concomitant]
     Indication: CORONARY ARTERY INSUFFICIENCY
     Route: 048
  6. ASPIRIN [Concomitant]
     Indication: CORONARY ARTERY INSUFFICIENCY
     Route: 048
  7. INEGY [Concomitant]
     Indication: CORONARY ARTERY INSUFFICIENCY
     Route: 048
  8. FORADIL [Concomitant]
     Indication: CHRONIC OBSTRUCTIVE PULMONARY DISEASE
     Route: 055
  9. FLIXOTIDE [Concomitant]
     Indication: CHRONIC OBSTRUCTIVE PULMONARY DISEASE
     Route: 055
  10. SPIRIVA [Concomitant]
     Indication: CHRONIC OBSTRUCTIVE PULMONARY DISEASE
     Route: 055

REACTIONS (1)
  - CORONARY ARTERY RESTENOSIS [None]
